FAERS Safety Report 8932126 (Version 1)
Quarter: 2012Q4

REPORT INFORMATION
  Report Type: 
  Country: IT (occurrence: IT)
  Receive Date: 20121128
  Receipt Date: 20121128
  Transmission Date: 20130627
  Serious: Yes (Other)
  Sender: FDA-Public Use
  Company Number: IT-PFIZER INC-2012295646

PATIENT
  Age: 2 Year
  Sex: Female

DRUGS (5)
  1. CYTARABINE [Suspect]
     Indication: ACUTE MYELOID LEUKAEMIA
     Dosage: 1710 mg, cyclic
     Route: 042
     Dates: start: 20120528
  2. CIPROXIN [Concomitant]
     Dosage: UNK
  3. BACTRIM [Concomitant]
     Dosage: UNK
  4. MYCOSTATIN [Concomitant]
     Dosage: UNK
  5. VANCOMYCIN [Concomitant]
     Dosage: UNK

REACTIONS (1)
  - Anal fissure [Recovering/Resolving]
